FAERS Safety Report 15611674 (Version 19)
Quarter: 2019Q3

REPORT INFORMATION
  Report Type: Report from Study
  Country: GB (occurrence: GB)
  Receive Date: 20181113
  Receipt Date: 20190822
  Transmission Date: 20191004
  Serious: Yes (Death, Hospitalization)
  Sender: FDA-Public Use
  Company Number: GB-ROCHE-2212107

PATIENT
  Age: 59 Year
  Sex: Male
  Weight: 69.6 kg

DRUGS (23)
  1. OMEPRAZOLE. [Concomitant]
     Active Substance: OMEPRAZOLE
     Indication: DUODENAL ULCER
     Route: 065
     Dates: start: 20181025
  2. HYDROCORTISONE. [Concomitant]
     Active Substance: HYDROCORTISONE
     Indication: INFECTION
     Route: 042
     Dates: start: 20181121, end: 20181125
  3. MAGNESIUM SULPHATE [MAGNESIUM SULFATE] [Concomitant]
     Active Substance: MAGNESIUM SULFATE
     Indication: BLOOD MAGNESIUM DECREASED
     Route: 065
     Dates: start: 20181116, end: 20181116
  4. HARTMANN^S SOLUTION [Concomitant]
     Active Substance: CALCIUM CHLORIDE\POTASSIUM CHLORIDE\SODIUM CHLORIDE\SODIUM LACTATE
     Route: 065
     Dates: start: 20181119, end: 20181120
  5. RAMIPRIL. [Concomitant]
     Active Substance: RAMIPRIL
     Indication: HYPERTENSION
  6. ACTRAPID [Concomitant]
     Active Substance: INSULIN HUMAN
     Indication: BLOOD GLUCOSE INCREASED
     Route: 065
     Dates: start: 20181115, end: 20181115
  7. CALCIUM GLUCONATE. [Concomitant]
     Active Substance: CALCIUM GLUCONATE
     Indication: BLOOD CALCIUM DECREASED
     Route: 065
     Dates: start: 20181115, end: 20181115
  8. LACTULOSE. [Concomitant]
     Active Substance: LACTULOSE
     Route: 065
     Dates: start: 20181119, end: 20181125
  9. PREDNISOLONE. [Concomitant]
     Active Substance: PREDNISOLONE
     Route: 048
     Dates: start: 20181026
  10. PARACETAMOL [Concomitant]
     Active Substance: ACETAMINOPHEN
     Route: 065
     Dates: start: 20181121, end: 20181125
  11. HARTMANN^S [Concomitant]
     Active Substance: CALCIUM CHLORIDE\POTASSIUM CHLORIDE\SODIUM CHLORIDE\SODIUM LACTATE
     Route: 065
     Dates: start: 20181123, end: 20181124
  12. BEVACIZUMAB. [Suspect]
     Active Substance: BEVACIZUMAB
     Indication: HEPATOCELLULAR CARCINOMA
     Dosage: DATE OF MOST RECENT DOSE OF BEVACIZUMAB PRIOR TO THE ONSET OF HEPATORENAL FAILURE: 02/OCT/2018 (1008
     Route: 042
     Dates: start: 20180814
  13. PREDNISOLONE. [Concomitant]
     Active Substance: PREDNISOLONE
     Indication: PLEURAL EFFUSION
     Route: 048
     Dates: start: 20181025, end: 20181025
  14. HARTMANN [CALCIUM CHLORIDE;POTASSIUM CHLORIDE;SODIUM LACTATE] [Concomitant]
     Route: 065
     Dates: start: 20181116, end: 20181116
  15. PARACETAMOL [Concomitant]
     Active Substance: ACETAMINOPHEN
     Indication: PAIN
     Route: 065
     Dates: start: 20181023, end: 20181025
  16. TAZOCIN [Concomitant]
     Active Substance: PIPERACILLIN SODIUM\TAZOBACTAM SODIUM
     Indication: INFECTION
     Route: 065
     Dates: start: 20181116, end: 20181125
  17. BISOPROLOL [Concomitant]
     Active Substance: BISOPROLOL
     Indication: ATRIAL FIBRILLATION
     Route: 065
     Dates: start: 20180518
  18. CODEINE [Concomitant]
     Active Substance: CODEINE
     Indication: PAIN
     Route: 065
     Dates: start: 20181024, end: 20181024
  19. TINZAPARIN [Concomitant]
     Active Substance: TINZAPARIN
     Route: 065
     Dates: start: 20181023, end: 20181023
  20. RANITIDINE. [Concomitant]
     Active Substance: RANITIDINE
     Route: 065
     Dates: start: 20181121, end: 20181123
  21. DIGOXIN. [Concomitant]
     Active Substance: DIGOXIN
     Indication: INFECTION
     Route: 065
     Dates: start: 20181119, end: 20181125
  22. OSMOTICALLY ACTING LAXATIVES [Concomitant]
     Active Substance: UNSPECIFIED INGREDIENT
     Indication: CONSTIPATION
     Route: 065
     Dates: start: 20181119, end: 20181124
  23. ATEZOLIZUMAB. [Suspect]
     Active Substance: ATEZOLIZUMAB
     Indication: HEPATOCELLULAR CARCINOMA
     Dosage: DATE OF MOST RECENT DOSE OF ATEZOLIZUMAB PRIOR TO THE ONSET OF CONFUSION, ENCEPHALOPATHY, EMPYEMA, L
     Route: 042
     Dates: start: 20180814

REACTIONS (4)
  - Cerebral infarction [Not Recovered/Not Resolved]
  - Confusional state [Recovered/Resolved]
  - Hepatorenal failure [Not Recovered/Not Resolved]
  - Empyema [Fatal]

NARRATIVE: CASE EVENT DATE: 20181106
